FAERS Safety Report 9291032 (Version 1)
Quarter: 2013Q2

REPORT INFORMATION
  Report Type: Spontaneous
  Country: US (occurrence: US)
  Receive Date: 20130515
  Receipt Date: 20130515
  Transmission Date: 20140414
  Serious: No
  Sender: FDA-Public Use
  Company Number: US-009507513-1305USA000861

PATIENT
  Sex: Male

DRUGS (1)
  1. DR. SCHOLLS CORN REMOVERS [Suspect]
     Indication: HYPERKERATOSIS
     Dosage: 1 DF, UNKNOWN
     Route: 061
     Dates: start: 20130421

REACTIONS (1)
  - Application site discolouration [Unknown]
